FAERS Safety Report 14909088 (Version 1)
Quarter: 2018Q2

REPORT INFORMATION
  Report Type: Spontaneous
  Country: US (occurrence: US)
  Receive Date: 20180430
  Receipt Date: 20180430
  Transmission Date: 20180711
  Serious: No
  Sender: FDA-Public Use
  Company Number: None

PATIENT
  Age: 69 Year
  Sex: Female

DRUGS (7)
  1. ULORIC [Concomitant]
     Active Substance: FEBUXOSTAT
  2. MAG OXIDE [Concomitant]
     Active Substance: MAGNESIUM OXIDE
  3. LISINOPRIL. [Concomitant]
     Active Substance: LISINOPRIL
  4. TASIGNA [Suspect]
     Active Substance: NILOTINIB
     Indication: CHRONIC MYELOID LEUKAEMIA
     Route: 048
     Dates: start: 20170216, end: 20180430
  5. TYLENOL [Concomitant]
     Active Substance: ACETAMINOPHEN
  6. JANUVIA [Concomitant]
     Active Substance: SITAGLIPTIN PHOSPHATE
  7. LIPITOR [Concomitant]
     Active Substance: ATORVASTATIN CALCIUM

REACTIONS (2)
  - Pruritus [None]
  - Alopecia [None]

NARRATIVE: CASE EVENT DATE: 20180430
